FAERS Safety Report 10479422 (Version 2)
Quarter: 2014Q4

REPORT INFORMATION
  Report Type: Report from Study
  Country: JP (occurrence: JP)
  Receive Date: 20140926
  Receipt Date: 20141128
  Transmission Date: 20150528
  Serious: Yes (Other)
  Sender: FDA-Public Use
  Company Number: JP-MERCK-1409JPN010922

PATIENT
  Age: 60 Year
  Sex: Female
  Weight: 46 kg

DRUGS (7)
  1. SIMEPREVIR [Suspect]
     Active Substance: SIMEPREVIR
     Indication: CHRONIC HEPATITIS C
     Dosage: 100 MG, QD
     Route: 048
     Dates: start: 20140605, end: 20140715
  2. PEGINTRON [Suspect]
     Active Substance: PEGINTERFERON ALFA-2B
     Dosage: 0.7 MICROGRAM PER KILOGRAM, QW (1 IN 1 WEEK)
     Route: 058
     Dates: start: 20140709, end: 20140709
  3. PEGINTRON [Suspect]
     Active Substance: PEGINTERFERON ALFA-2B
     Dosage: 0.9 MICROGRAM PER KILOGRAM, QW (1 IN 1 WEEK)
     Route: 058
     Dates: start: 20140611, end: 20140702
  4. PROTECADIN [Concomitant]
     Active Substance: LAFUTIDINE
     Indication: CHRONIC GASTRITIS
     Dosage: 20 MG, QD (1 IN 1 DAY)
     Route: 048
  5. RIBAVIRIN. [Suspect]
     Active Substance: RIBAVIRIN
     Indication: CHRONIC HEPATITIS C
     Dosage: 400 MG, QD (1 IN 1 DAY)
     Route: 048
     Dates: start: 20140605, end: 20140610
  6. PEGINTRON [Suspect]
     Active Substance: PEGINTERFERON ALFA-2B
     Indication: CHRONIC HEPATITIS C
     Dosage: 1.3 MICROGRAM PER KILOGRAM, QW (1 IN 1 WEEK)
     Route: 058
     Dates: start: 20140605, end: 20140605
  7. RIBAVIRIN. [Suspect]
     Active Substance: RIBAVIRIN
     Dosage: 200 MG, QD (1 IN 1 DAY)
     Route: 048
     Dates: start: 20140611, end: 20140615

REACTIONS (4)
  - Rash [Recovered/Resolved]
  - Pyrexia [Recovered/Resolved]
  - Drug effect incomplete [Unknown]
  - Platelet count decreased [Not Recovered/Not Resolved]

NARRATIVE: CASE EVENT DATE: 2014
